FAERS Safety Report 15289431 (Version 3)
Quarter: 2018Q3

REPORT INFORMATION
  Report Type: Spontaneous
  Country: TT (occurrence: TT)
  Receive Date: 20180817
  Receipt Date: 20180829
  Transmission Date: 20181010
  Serious: Yes (Other)
  Sender: FDA-Public Use
  Company Number: TT-ELI_LILLY_AND_COMPANY-TT201808006681

PATIENT
  Age: 37 Year
  Sex: Male

DRUGS (4)
  1. ERBITUX [Suspect]
     Active Substance: CETUXIMAB
     Dosage: 400 MG, WEEKLY (1/W)
     Route: 042
     Dates: start: 20180817
  2. ERBITUX [Suspect]
     Active Substance: CETUXIMAB
     Indication: HEAD AND NECK CANCER
     Dosage: 400 MG, UNKNOWN
     Route: 042
     Dates: start: 20180528, end: 20180528
  3. ERBITUX [Suspect]
     Active Substance: CETUXIMAB
     Dosage: 200 MG, WEEKLY (1/W)
     Route: 042
     Dates: start: 20180528
  4. CARBOPLATIN. [Concomitant]
     Active Substance: CARBOPLATIN
     Indication: HEAD AND NECK CANCER

REACTIONS (4)
  - Neck pain [Recovering/Resolving]
  - Tumour haemorrhage [Unknown]
  - Malignant neoplasm progression [Unknown]
  - Eye pain [Recovering/Resolving]

NARRATIVE: CASE EVENT DATE: 2018
